FAERS Safety Report 4760057-5 (Version None)
Quarter: 2005Q3

REPORT INFORMATION
  Report Type: 
  Country: None (occurrence: None)
  Receive Date: 20050831
  Receipt Date: 20050823
  Transmission Date: 20060218
  Serious: Yes (Other)
  Sender: FDA-Public Use
  Company Number: 217136

PATIENT
  Age: 20 Year
  Sex: Female

DRUGS (1)
  1. XOLAIR [Suspect]
     Indication: ASTHMA
     Dosage: 225 MG, Q2W,

REACTIONS (4)
  - ARTHRALGIA [None]
  - CHEST PAIN [None]
  - INFLUENZA LIKE ILLNESS [None]
  - MYALGIA [None]
